FAERS Safety Report 17906757 (Version 1)
Quarter: 2020Q2

REPORT INFORMATION
  Report Type: Spontaneous
  Country: DE (occurrence: DE)
  Receive Date: 20200617
  Receipt Date: 20200617
  Transmission Date: 20200714
  Serious: Yes (Hospitalization)
  Sender: FDA-Public Use
  Company Number: DE-PFIZER INC-2020234223

PATIENT
  Age: 55 Year
  Sex: Male

DRUGS (8)
  1. DOCETAXEL. [Suspect]
     Active Substance: DOCETAXEL
     Dosage: 60 MILLIGRAM
     Route: 042
  2. FENTANYL. [Concomitant]
     Active Substance: FENTANYL
     Dosage: 25 MICROGRAM, Q1HR
  3. METAMIZOL [METAMIZOLE MAGNESIUM] [Concomitant]
     Active Substance: METAMIZOLE MAGNESIUM
     Dosage: 500 MILLIGRAM, QID
  4. VARGATEF [Suspect]
     Active Substance: NINTEDANIB
     Dosage: UNK
  5. DEXAMETHASON [DEXAMETHASONE] [Suspect]
     Active Substance: DEXAMETHASONE
     Dosage: 2 MILLIGRAM, BID
  6. MOXIFLOXACIN. [Concomitant]
     Active Substance: MOXIFLOXACIN
     Dosage: 400 MILLIGRAM, QD
  7. PANTOPRAZOLE [Suspect]
     Active Substance: PANTOPRAZOLE
     Dosage: 40 MILLIGRAM, QD
  8. MOVICOL [Concomitant]
     Active Substance: POLYETHYLENE GLYCOL 3350\POTASSIUM CHLORIDE\SODIUM BICARBONATE\SODIUM CHLORIDE
     Dosage: UNK UNK, QD

REACTIONS (2)
  - Musculoskeletal pain [Unknown]
  - Fracture [Unknown]
